FAERS Safety Report 9060001 (Version 3)
Quarter: 2013Q1

REPORT INFORMATION
  Report Type: Spontaneous
  Country: IT (occurrence: IT)
  Receive Date: 20130212
  Receipt Date: 20130322
  Transmission Date: 20140127
  Serious: Yes (Hospitalization, Other)
  Sender: FDA-Public Use
  Company Number: IT-ELI_LILLY_AND_COMPANY-IT201301009847

PATIENT
  Age: 45 None
  Sex: Male

DRUGS (7)
  1. HUMALOG LISPRO [Suspect]
     Indication: DIABETES MELLITUS
     Dosage: 16 IU, QD
     Route: 058
     Dates: start: 20121205, end: 20121220
  2. HUMALOG LISPRO [Suspect]
     Dosage: 20 IU, SINGLE
     Dates: start: 20130105, end: 20130105
  3. LANTUS [Concomitant]
     Indication: DIABETES MELLITUS
     Dosage: 18 IU, QD
     Route: 058
     Dates: start: 20121205, end: 20121220
  4. PARACETAMOL [Concomitant]
     Dosage: 1 G, UNK
     Route: 048
  5. LYRICA [Concomitant]
     Dosage: 2 DF, UNK
     Route: 048
  6. BENEXOL B1 B6 B12 [Concomitant]
     Dosage: 2 DF, UNK
     Route: 048
  7. TAVOR [Concomitant]
     Dosage: 1 DF, UNK
     Route: 048

REACTIONS (3)
  - Hypoglycaemic coma [Recovered/Resolved]
  - Hypoglycaemic coma [Recovered/Resolved]
  - Hypoglycaemia [Unknown]
